FAERS Safety Report 12849368 (Version 3)
Quarter: 2017Q2

REPORT INFORMATION
  Report Type: Report from Study
  Country: US (occurrence: US)
  Receive Date: 20161014
  Receipt Date: 20170405
  Transmission Date: 20170830
  Serious: Yes (Other)
  Sender: FDA-Public Use
  Company Number: US-JNJFOC-20160611887

PATIENT
  Age: 71 Year
  Sex: Male

DRUGS (7)
  1. IMBRUVICA [Suspect]
     Active Substance: IBRUTINIB
     Indication: HAEMATOLOGICAL MALIGNANCY
     Dosage: HALF A DOSE
     Route: 048
  2. IMBRUVICA [Suspect]
     Active Substance: IBRUTINIB
     Indication: CHRONIC LYMPHOCYTIC LEUKAEMIA
     Dosage: HALF A DOSE
     Route: 048
  3. MICARDIS [Concomitant]
     Active Substance: TELMISARTAN
  4. IMBRUVICA [Suspect]
     Active Substance: IBRUTINIB
     Indication: HAEMATOLOGICAL MALIGNANCY
     Route: 048
     Dates: start: 20160514, end: 20161004
  5. IMBRUVICA [Suspect]
     Active Substance: IBRUTINIB
     Indication: CHRONIC LYMPHOCYTIC LEUKAEMIA
     Route: 048
     Dates: start: 20160512
  6. IMBRUVICA [Suspect]
     Active Substance: IBRUTINIB
     Indication: CHRONIC LYMPHOCYTIC LEUKAEMIA
     Route: 048
     Dates: start: 20160514, end: 20161004
  7. IMBRUVICA [Suspect]
     Active Substance: IBRUTINIB
     Indication: HAEMATOLOGICAL MALIGNANCY
     Route: 048
     Dates: start: 20160512

REACTIONS (6)
  - Mouth haemorrhage [Unknown]
  - Rash erythematous [Recovering/Resolving]
  - Angina bullosa haemorrhagica [Recovering/Resolving]
  - Stomatitis [Not Recovered/Not Resolved]
  - Oral mucosal blistering [Unknown]
  - Myocarditis [Unknown]

NARRATIVE: CASE EVENT DATE: 20160608
